FAERS Safety Report 20846390 (Version 2)
Quarter: 2022Q2

REPORT INFORMATION
  Report Type: Spontaneous
  Country: DE (occurrence: DE)
  Receive Date: 20220518
  Receipt Date: 20220529
  Transmission Date: 20220721
  Serious: Yes (Other)
  Sender: FDA-Public Use
  Company Number: None

PATIENT
  Age: 67 Year
  Sex: Male
  Weight: 88 kg

DRUGS (2)
  1. OXALIPLATIN [Suspect]
     Active Substance: OXALIPLATIN
     Dosage: 143 MG
     Route: 042
     Dates: start: 20220411
  2. DEXTROSE [Suspect]
     Active Substance: DEXTROSE
     Route: 042
     Dates: start: 20220411

REACTIONS (5)
  - Oedema mucosal [Unknown]
  - Speech disorder [Unknown]
  - Cardiovascular disorder [Unknown]
  - Muscle rigidity [Unknown]
  - Dyspnoea [Unknown]

NARRATIVE: CASE EVENT DATE: 20220411
